FAERS Safety Report 15869328 (Version 6)
Quarter: 2019Q1

REPORT INFORMATION
  Report Type: Report from Study
  Country: US (occurrence: US)
  Receive Date: 20190125
  Receipt Date: 20190321
  Transmission Date: 20190417
  Serious: Yes (Hospitalization)
  Sender: FDA-Public Use
  Company Number: US-ACTELION-A-US2019-185266

PATIENT
  Age: 83 Year
  Sex: Female
  Weight: 79.37 kg

DRUGS (8)
  1. UPTRAVI [Suspect]
     Active Substance: SELEXIPAG
     Dosage: 200 MCG, BID
     Route: 048
  2. UPTRAVI [Suspect]
     Active Substance: SELEXIPAG
     Dosage: 400 MCG, BID
     Route: 048
  3. UPTRAVI [Suspect]
     Active Substance: SELEXIPAG
     Indication: PULMONARY ARTERIAL HYPERTENSION
     Dosage: 800 MCG, BID
     Route: 048
  4. PREDNISONE. [Suspect]
     Active Substance: PREDNISONE
     Indication: PRODUCT USED FOR UNKNOWN INDICATION
     Route: 065
  5. WARFARIN [Concomitant]
     Active Substance: WARFARIN
  6. UPTRAVI [Suspect]
     Active Substance: SELEXIPAG
     Dosage: 600 MCG, BID
     Route: 048
  7. OPSUMIT [Suspect]
     Active Substance: MACITENTAN
     Indication: PULMONARY ARTERIAL HYPERTENSION
     Dosage: 10 MG, QD
     Route: 048
     Dates: start: 20170329
  8. AMLODIPINE [Concomitant]
     Active Substance: AMLODIPINE BESYLATE

REACTIONS (18)
  - Arthralgia [Unknown]
  - Diarrhoea [Unknown]
  - Fatigue [Unknown]
  - Memory impairment [Unknown]
  - Anxiety [Unknown]
  - Asthenopia [Unknown]
  - Confusional state [Unknown]
  - Headache [Unknown]
  - Cough [Unknown]
  - Nervousness [Recovering/Resolving]
  - Abdominal distension [Unknown]
  - Respiratory tract infection [Recovered/Resolved]
  - Pain [Unknown]
  - Back pain [Unknown]
  - Malaise [Unknown]
  - Insomnia [Unknown]
  - Influenza [Unknown]
  - Abnormal dreams [Unknown]

NARRATIVE: CASE EVENT DATE: 201901
